FAERS Safety Report 8016749-8 (Version None)
Quarter: 2012Q1

REPORT INFORMATION
  Report Type: 
  Country: None (occurrence: None)
  Receive Date: 20120102
  Receipt Date: 20111227
  Transmission Date: 20120608
  Serious: Yes (Hospitalization)
  Sender: FDA-Public Use
  Company Number: US-BIOGENIDEC-2011BI048976

PATIENT
  Age: 58 Year
  Sex: Female

DRUGS (2)
  1. AVONEX [Suspect]
     Indication: MULTIPLE SCLEROSIS
     Route: 030
     Dates: start: 20090820, end: 20111001
  2. AVONEX [Suspect]
     Route: 030
     Dates: start: 20000202, end: 20040601

REACTIONS (2)
  - MYOCARDIAL INFARCTION [None]
  - ARTERIAL DISORDER [None]
